FAERS Safety Report 19152193 (Version 1)
Quarter: 2021Q2

REPORT INFORMATION
  Report Type: Spontaneous
  Country: FR (occurrence: FR)
  Receive Date: 20210419
  Receipt Date: 20210419
  Transmission Date: 20210717
  Serious: Yes (Hospitalization)
  Sender: FDA-Public Use
  Company Number: FR-CADILA HEALTHCARE LIMITED-FR-ZYDUS-064669

PATIENT

DRUGS (12)
  1. TANGANIL [Suspect]
     Active Substance: ACETYLLEUCINE, L-
     Indication: PRODUCT USED FOR UNKNOWN INDICATION
     Dosage: 1 UNK,1 TOTAL
     Route: 048
     Dates: start: 20200801, end: 20200801
  2. PRIMPERAN [Suspect]
     Active Substance: METOCLOPRAMIDE HYDROCHLORIDE
     Indication: PRODUCT USED FOR UNKNOWN INDICATION
     Dosage: 1 UNK,1 TOTAL
     Route: 048
     Dates: start: 20200801, end: 20200801
  3. TRAMADOL. [Suspect]
     Active Substance: TRAMADOL
     Indication: PRODUCT USED FOR UNKNOWN INDICATION
     Dosage: 1 UNK,1 TOTAL
     Route: 048
     Dates: start: 20200801, end: 20200801
  4. ESOMEPRAZOLE. [Concomitant]
     Active Substance: ESOMEPRAZOLE MAGNESIUM
     Indication: PRODUCT USED FOR UNKNOWN INDICATION
     Dosage: UNK
  5. TRAMADOL. [Suspect]
     Active Substance: TRAMADOL
     Indication: SUICIDE ATTEMPT
     Dosage: 1 UNK,1 TOTAL
     Route: 048
     Dates: start: 20200801, end: 20200801
  6. TANGANIL [Suspect]
     Active Substance: ACETYLLEUCINE, L-
     Indication: SUICIDE ATTEMPT
     Dosage: 1 UNK,1 TOTAL
     Route: 048
     Dates: start: 20200801, end: 20200801
  7. PRIMPERAN [Suspect]
     Active Substance: METOCLOPRAMIDE HYDROCHLORIDE
     Indication: SUICIDE ATTEMPT
     Dosage: 1 UNK,1 TOTAL
     Route: 048
     Dates: start: 20200801, end: 20200801
  8. KETOPROFEN. [Suspect]
     Active Substance: KETOPROFEN
     Indication: PRODUCT USED FOR UNKNOWN INDICATION
     Dosage: 1 UNK,1 TOTAL
     Route: 048
     Dates: start: 20200801, end: 20200801
  9. HYDROXYZINE HYDROCHLORIDE. [Suspect]
     Active Substance: HYDROXYZINE HYDROCHLORIDE
     Indication: PRODUCT USED FOR UNKNOWN INDICATION
     Dosage: 1 UNK,1 TOTAL
     Route: 048
     Dates: start: 20200801, end: 20200801
  10. OXYCODONE [Suspect]
     Active Substance: OXYCODONE
     Indication: SUICIDE ATTEMPT
     Dosage: 1 UNK,1 TOTAL
     Route: 048
     Dates: start: 20200801, end: 20200801
  11. HYDROXYZINE HYDROCHLORIDE. [Suspect]
     Active Substance: HYDROXYZINE HYDROCHLORIDE
     Indication: SUICIDE ATTEMPT
     Dosage: 1 UNK,1 TOTAL
     Route: 048
     Dates: start: 20200801, end: 20200801
  12. KETOPROFEN. [Suspect]
     Active Substance: KETOPROFEN
     Indication: SUICIDE ATTEMPT
     Dosage: 1 UNK,1 TOTAL
     Route: 048
     Dates: start: 20200801, end: 20200801

REACTIONS (3)
  - Miosis [Recovered/Resolved]
  - Toxicity to various agents [Recovered/Resolved]
  - Oxygen saturation decreased [Recovered/Resolved]

NARRATIVE: CASE EVENT DATE: 20200801
